FAERS Safety Report 19132959 (Version 2)
Quarter: 2021Q2

REPORT INFORMATION
  Report Type: Report from Study
  Country: US (occurrence: US)
  Receive Date: 20210413
  Receipt Date: 20210601
  Transmission Date: 20210717
  Serious: Yes (Hospitalization, Other)
  Sender: FDA-Public Use
  Company Number: US-GILEAD-2021-0524569

PATIENT
  Sex: Male

DRUGS (1)
  1. AMBRISENTAN [Suspect]
     Active Substance: AMBRISENTAN
     Indication: PRODUCT USED FOR UNKNOWN INDICATION
     Dosage: 10 MG, QD
     Route: 048
     Dates: start: 20160217

REACTIONS (6)
  - Dyspnoea [Unknown]
  - Intentional product use issue [Unknown]
  - Fall [Unknown]
  - Head injury [Unknown]
  - Loss of consciousness [Unknown]
  - Rib fracture [Unknown]
